FAERS Safety Report 11498396 (Version 9)
Quarter: 2015Q4

REPORT INFORMATION
  Report Type: Spontaneous
  Country: US (occurrence: US)
  Receive Date: 20150911
  Receipt Date: 20151230
  Transmission Date: 20160304
  Serious: Yes (Hospitalization, Other)
  Sender: FDA-Public Use
  Company Number: US-UNITED THERAPEUTICS-UNT-2015-010951

PATIENT
  Age: 42 Year
  Sex: Female
  Weight: 116.1 kg

DRUGS (2)
  1. REMODULIN [Suspect]
     Active Substance: TREPROSTINIL
     Indication: PULMONARY ARTERIAL HYPERTENSION
     Dosage: 0.050 ?G/KG, CONTINUING
     Route: 041
     Dates: start: 20150428
  2. REMODULIN [Suspect]
     Active Substance: TREPROSTINIL
     Dosage: 0.043 ?G/KG, CONTINUING
     Route: 041

REACTIONS (20)
  - Injection site infection [Unknown]
  - Device dislocation [Unknown]
  - Device related infection [Unknown]
  - Rectal haemorrhage [Unknown]
  - Injection site haemorrhage [Unknown]
  - Injection site oedema [Unknown]
  - Pulmonary oedema [Unknown]
  - Injection site discharge [Unknown]
  - Haemoptysis [Unknown]
  - Injection site pain [Unknown]
  - Pneumonia [Unknown]
  - Malaise [Unknown]
  - Device leakage [Unknown]
  - Drug dose omission [Unknown]
  - Weight increased [Unknown]
  - Device breakage [Unknown]
  - Pleurisy [Unknown]
  - Bacteraemia [Unknown]
  - Chest pain [Unknown]
  - Chills [Unknown]

NARRATIVE: CASE EVENT DATE: 201508
